FAERS Safety Report 4363006-7 (Version None)
Quarter: 2004Q2

REPORT INFORMATION
  Report Type: 
  Country: None (occurrence: None)
  Receive Date: 20040518
  Receipt Date: 20040505
  Transmission Date: 20050107
  Serious: Yes (Other)
  Sender: FDA-Public Use
  Company Number: GB-JNJFOC-20040303328

PATIENT
  Age: 37 Year
  Sex: Female

DRUGS (5)
  1. VERMOX [Suspect]
  2. PROCHLORPERAZINE [Suspect]
     Indication: VOMITING
     Dosage: 3 G
  3. RANITIDINE [Suspect]
     Indication: DYSPEPSIA
     Dosage: 150 G, ORAL
     Route: 048
     Dates: start: 20031126
  4. ATENOLOL [Suspect]
     Indication: BLOOD PRESSURE
     Dosage: 50 G, ORAL
     Route: 048
     Dates: start: 20040216
  5. AMOXICILLIN [Suspect]
     Indication: URINARY TRACT INFECTION
     Dosage: 500 G, ORAL
     Route: 048
     Dates: start: 20040408

REACTIONS (6)
  - ACCIDENTAL EXPOSURE [None]
  - DRUG EXPOSURE DURING PREGNANCY [None]
  - HYPERTENSION [None]
  - PREMATURE LABOUR [None]
  - URINARY TRACT INFECTION [None]
  - VOMITING [None]
